FAERS Safety Report 17588700 (Version 8)
Quarter: 2020Q2

REPORT INFORMATION
  Report Type: Report from Study
  Country: IL (occurrence: IL)
  Receive Date: 20200327
  Receipt Date: 20200506
  Transmission Date: 20200713
  Serious: Yes (Hospitalization, Other)
  Sender: FDA-Public Use
  Company Number: IL-ROCHE-2557955

PATIENT
  Age: 46 Year
  Sex: Female

DRUGS (11)
  1. CLEXANE [Concomitant]
     Active Substance: ENOXAPARIN SODIUM
     Route: 065
     Dates: start: 20200220, end: 20200224
  2. CISPLATIN. [Suspect]
     Active Substance: CISPLATIN
     Indication: MALIGNANT NEOPLASM OF UNKNOWN PRIMARY SITE
     Dosage: ON 13/JAN/2020, THE CISPLATIN WAS ADMINISTERED AT 01:15 PRIOR TO ONSET OF SAE
     Route: 042
     Dates: start: 20200113
  3. CISPLATIN. [Suspect]
     Active Substance: CISPLATIN
     Dosage: ON 10/FEB/2020, THE CISPLATIN WAS ADMINISTERED AT 01:15 PRIOR TO ONSET OF SAE
     Route: 042
     Dates: start: 20200210
  4. GEMCITABINE. [Suspect]
     Active Substance: GEMCITABINE
     Dosage: ON 10/FEB/2020, GEMICITABINE WAS ADMINISTERED AT 15:30 PRIOR TO SAE ONSET.
     Route: 042
     Dates: start: 20191210
  5. AKYNZEO [Concomitant]
     Active Substance: NETUPITANT\PALONOSETRON HYDROCHLORIDE
     Route: 048
     Dates: start: 20191202
  6. ATEZOLIZUMAB. [Suspect]
     Active Substance: ATEZOLIZUMAB
     Indication: MALIGNANT NEOPLASM OF UNKNOWN PRIMARY SITE
     Dosage: LAST DOSE 10/FEB/2020
     Route: 042
     Dates: start: 20200210
  7. GEMCITABINE. [Suspect]
     Active Substance: GEMCITABINE
     Indication: MALIGNANT NEOPLASM OF UNKNOWN PRIMARY SITE
     Dosage: ON 20/JAN/2020, GEMICITABINE WAS ADMINISTERED AT 15:30 PRIOR TO SAE ONSET.
     Route: 042
     Dates: start: 20200120
  8. PRAMIN [METOCLOPRAMIDE HYDROCHLORIDE] [Concomitant]
     Active Substance: METOCLOPRAMIDE HYDROCHLORIDE
     Route: 048
     Dates: start: 20191113
  9. IMODIUM [Concomitant]
     Active Substance: LOPERAMIDE HYDROCHLORIDE
     Indication: DIARRHOEA
     Route: 065
     Dates: start: 20200215
  10. KONAKION [Concomitant]
     Active Substance: PHYTONADIONE
     Route: 065
     Dates: start: 20200227
  11. GLUCAGEN HYPOKIT [Concomitant]
     Active Substance: GLUCAGON HYDROCHLORIDE
     Route: 058
     Dates: start: 20191128

REACTIONS (2)
  - Autoimmune haemolytic anaemia [Recovered/Resolved]
  - Small intestinal haemorrhage [Recovered/Resolved]

NARRATIVE: CASE EVENT DATE: 20200223
